FAERS Safety Report 12841441 (Version 1)
Quarter: 2016Q4

REPORT INFORMATION
  Report Type: Spontaneous
  Country: US (occurrence: US)
  Receive Date: 20161012
  Receipt Date: 20161012
  Transmission Date: 20170207
  Serious: Yes (Other)
  Sender: FDA-Public Use
  Company Number: US-B.I. PHARMACEUTICALS,INC./RIDGEFIELD-2016-BI-065825

PATIENT
  Age: 83 Year
  Weight: 97.98 kg

DRUGS (7)
  1. PRADAXA [Suspect]
     Active Substance: DABIGATRAN ETEXILATE MESYLATE
     Indication: PRODUCT USED FOR UNKNOWN INDICATION
     Route: 065
  2. ROXICODONE [Suspect]
     Active Substance: OXYCODONE HYDROCHLORIDE
     Indication: PAIN
     Route: 048
  3. BUMEX [Suspect]
     Active Substance: BUMETANIDE
     Indication: PRODUCT USED FOR UNKNOWN INDICATION
     Route: 048
  4. ZYLOPRIM [Suspect]
     Active Substance: ALLOPURINOL
     Indication: PRODUCT USED FOR UNKNOWN INDICATION
     Route: 065
  5. KLOR-CON [Suspect]
     Active Substance: POTASSIUM CHLORIDE
     Indication: PRODUCT USED FOR UNKNOWN INDICATION
     Route: 048
  6. ALDACTONE [Suspect]
     Active Substance: SPIRONOLACTONE
     Indication: PRODUCT USED FOR UNKNOWN INDICATION
     Route: 065
  7. MIRAPEX [Suspect]
     Active Substance: PRAMIPEXOLE DIHYDROCHLORIDE
     Indication: PRODUCT USED FOR UNKNOWN INDICATION
     Route: 048

REACTIONS (17)
  - Oedema peripheral [Unknown]
  - Obstruction [Unknown]
  - Pickwickian syndrome [Unknown]
  - Diaphragmatic disorder [Unknown]
  - Anxiety [Unknown]
  - Plasma cell myeloma [Unknown]
  - Chest discomfort [Unknown]
  - Drug ineffective [Unknown]
  - Fatigue [Unknown]
  - Overlap syndrome [Unknown]
  - Nervousness [Unknown]
  - Cardiac amyloidosis [Unknown]
  - Dyspnoea [Unknown]
  - Cardiac murmur [Unknown]
  - Renal impairment [Unknown]
  - Dyspnoea exertional [Unknown]
  - Pollakiuria [Unknown]
